FAERS Safety Report 17049580 (Version 1)
Quarter: 2019Q4

REPORT INFORMATION
  Report Type: Spontaneous
  Country: GB (occurrence: SE)
  Receive Date: 20191119
  Receipt Date: 20191119
  Transmission Date: 20200122
  Serious: Yes (Hospitalization)
  Sender: FDA-Public Use
  Company Number: SE-BAYER-2019-206048

PATIENT
  Age: 18 Year
  Sex: Female

DRUGS (2)
  1. CLARITINE 10 MG [Suspect]
     Active Substance: LORATADINE
     Dosage: 60 MG, UNK
     Route: 048
  2. PROMETHAZINE [Suspect]
     Active Substance: PROMETHAZINE HYDROCHLORIDE
     Dosage: 100 MG, UNK
     Route: 048

REACTIONS (4)
  - Intentional overdose [Unknown]
  - Palpitations [Unknown]
  - Dizziness [Unknown]
  - Intentional self-injury [Unknown]

NARRATIVE: CASE EVENT DATE: 20180607
